FAERS Safety Report 16843996 (Version 1)
Quarter: 2019Q3

REPORT INFORMATION
  Report Type: Spontaneous
  Country: CA (occurrence: CA)
  Receive Date: 20190924
  Receipt Date: 20190924
  Transmission Date: 20191005
  Serious: Yes (Other)
  Sender: FDA-Public Use
  Company Number: CA-PFIZER INC-2019407676

PATIENT
  Age: 59 Year
  Sex: Female

DRUGS (2)
  1. GAVISCON [ALGELDRATE;SODIUM ALGINATE] [Suspect]
     Active Substance: ALGELDRATE\SODIUM ALGINATE
     Dosage: UNK
  2. CIPROFLOXACIN. [Suspect]
     Active Substance: CIPROFLOXACIN
     Indication: PYELONEPHRITIS
     Dosage: 500 MG, 2X/DAY

REACTIONS (3)
  - Vaginal infection [Recovered/Resolved]
  - Off label use [Unknown]
  - Vaginal haemorrhage [Recovered/Resolved]
